FAERS Safety Report 10475575 (Version 1)
Quarter: 2014Q3

REPORT INFORMATION
  Report Type: Spontaneous
  Country: US (occurrence: US)
  Receive Date: 20140925
  Receipt Date: 20140925
  Transmission Date: 20150326
  Serious: No
  Sender: FDA-Public Use
  Company Number: US-BAUSCH-SYM-2014-15134

PATIENT
  Age: 9 Year
  Sex: Female

DRUGS (4)
  1. CLONAZEPAM. [Concomitant]
     Active Substance: CLONAZEPAM
     Indication: CONVULSION
  2. DIASTAT [Suspect]
     Active Substance: DIAZEPAM
     Indication: CONVULSION
  3. KEPPRA [Concomitant]
     Active Substance: LEVETIRACETAM
     Indication: CONVULSION
  4. VIMPAT [Concomitant]
     Active Substance: LACOSAMIDE
     Indication: CONVULSION

REACTIONS (1)
  - Drug effect decreased [Unknown]
